FAERS Safety Report 16090872 (Version 1)
Quarter: 2019Q1

REPORT INFORMATION
  Report Type: Spontaneous
  Country: US (occurrence: US)
  Receive Date: 20190319
  Receipt Date: 20190319
  Transmission Date: 20190418
  Serious: Yes (Other)
  Sender: FDA-Public Use
  Company Number: US-TEVA-2019-US-1026574

PATIENT
  Sex: Male

DRUGS (1)
  1. METHYLPREDNISOLONE. [Suspect]
     Active Substance: METHYLPREDNISOLONE
     Indication: CARPAL TUNNEL SYNDROME
     Dosage: 1X5 ML
     Route: 065
     Dates: start: 20190222

REACTIONS (2)
  - Infection [Unknown]
  - Off label use [Unknown]
